FAERS Safety Report 4971950-2 (Version None)
Quarter: 2006Q2

REPORT INFORMATION
  Report Type: 
  Country: None (occurrence: None)
  Receive Date: 20060407
  Receipt Date: 20060328
  Transmission Date: 20061013
  Serious: Yes (Other)
  Sender: FDA-Public Use
  Company Number: HQWYE278510JAN06

PATIENT
  Age: 47 Year
  Sex: Male

DRUGS (6)
  1. MYLOTARG [Suspect]
     Indication: ACUTE MYELOID LEUKAEMIA
     Dosage: 9 MB/M2 1X PER 1 DAY; INTRAVENOUS DRIP
     Route: 041
     Dates: start: 20051024, end: 20051024
  2. MYLOTARG [Suspect]
     Indication: ACUTE MYELOID LEUKAEMIA
     Dosage: 9 MB/M2 1X PER 1 DAY; INTRAVENOUS DRIP
     Route: 041
     Dates: start: 20051107, end: 20051107
  3. POLYMYXIN B SULFATE [Concomitant]
  4. DIFLUCAN [Concomitant]
  5. SULFAMETHOXAZOLE + TRIMETHOPRIM [Concomitant]
  6. MUCOSTA (REBAMIPIDE) [Concomitant]

REACTIONS (9)
  - ACUTE MYELOID LEUKAEMIA [None]
  - FIBRIN DEGRADATION PRODUCTS INCREASED [None]
  - FUNGAL INFECTION [None]
  - HAEMOGLOBIN DECREASED [None]
  - IMMUNODEFICIENCY [None]
  - MALIGNANT NEOPLASM PROGRESSION [None]
  - PLATELET COUNT DECREASED [None]
  - SEPSIS [None]
  - WEIGHT INCREASED [None]
